FAERS Safety Report 9222290 (Version 1)
Quarter: 2013Q1

REPORT INFORMATION
  Report Type: Spontaneous
  Country: US (occurrence: None)
  Receive Date: 20120910
  Receipt Date: 20120910
  Transmission Date: 20140127
  Serious: No
  Sender: FDA-Public Use
  Company Number: 1205USA03827

PATIENT
  Sex: 0

DRUGS (1)
  1. ZIOPTAN ( TAFLUPROST) EYE DROPS, SOLUTION [Suspect]
     Indication: OPEN ANGLE GLAUCOMA

REACTIONS (1)
  - Dizziness [None]
